FAERS Safety Report 10388449 (Version 2)
Quarter: 2014Q3

REPORT INFORMATION
  Report Type: Report from Study
  Country: AR (occurrence: AR)
  Receive Date: 20140815
  Receipt Date: 20140915
  Transmission Date: 20150326
  Serious: Yes (Hospitalization, Other)
  Sender: FDA-Public Use
  Company Number: PHHY2014AR101652

PATIENT
  Age: 79 Year
  Sex: Female

DRUGS (6)
  1. RASILEZ [Suspect]
     Active Substance: ALISKIREN
     Indication: HYPERTENSION
     Dosage: 1 COATED TABLET (300 MG), DAILY
  2. DIOVAN [Suspect]
     Active Substance: VALSARTAN
     Indication: OFF LABEL USE
  3. DIOVAN [Suspect]
     Active Substance: VALSARTAN
     Indication: HYPERTENSION
     Dosage: 1 TABLET (160 MG) DAILY
     Route: 048
  4. RASILEZ [Suspect]
     Active Substance: ALISKIREN
     Indication: OFF LABEL USE
  5. RASILEZ [Suspect]
     Active Substance: ALISKIREN
     Indication: BLOOD CHOLESTEROL
  6. DIOVAN [Suspect]
     Active Substance: VALSARTAN
     Indication: BLOOD CHOLESTEROL

REACTIONS (7)
  - Head injury [Unknown]
  - Blood pressure decreased [Not Recovered/Not Resolved]
  - Fall [Unknown]
  - Ankle fracture [Recovering/Resolving]
  - Chronic obstructive pulmonary disease [Not Recovered/Not Resolved]
  - Pneumothorax [Not Recovered/Not Resolved]
  - Respiratory fatigue [Recovering/Resolving]

NARRATIVE: CASE EVENT DATE: 201305
